FAERS Safety Report 6306399-3 (Version None)
Quarter: 2009Q3

REPORT INFORMATION
  Report Type: 
  Country: None (occurrence: None)
  Receive Date: 20090812
  Receipt Date: 20090807
  Transmission Date: 20100115
  Serious: Yes (Death, Hospitalization)
  Sender: FDA-Public Use
  Company Number: US-ELI_LILLY_AND_COMPANY-US200904000512

PATIENT
  Weight: 73 kg

DRUGS (22)
  1. BYETTA [Suspect]
     Indication: TYPE 2 DIABETES MELLITUS
     Dosage: UNK, UNK
     Route: 058
     Dates: start: 20060601
  2. REGULAR INSULIN [Concomitant]
  3. INSULIN INSULATARD NPH NORDISK [Concomitant]
  4. CILOSTAZOL [Concomitant]
     Dosage: 100 MG, 2/D
  5. ORLISTAT [Concomitant]
     Dosage: 120 MG, 3/D
  6. MULTI-VITAMINS [Concomitant]
  7. OLANZAPINE [Concomitant]
     Dosage: 7.5 MG, EACH EVENING
  8. NEFAZODONE HCL [Concomitant]
     Dosage: 100 MG, EACH EVENING
  9. ATORVASTATIN [Concomitant]
     Dosage: 200 MG, DAILY (1/D)
  10. LOVAZA [Concomitant]
  11. BENADRYL [Concomitant]
     Dosage: UNK, AS NEEDED
  12. LEVOTHYROXINE [Concomitant]
     Dosage: 100 MG, DAILY (1/D)
  13. ASPIRIN [Concomitant]
     Dosage: 81 MG, DAILY (1/D)
  14. OXYBUTYNIN [Concomitant]
     Dosage: 20 MG, DAILY (1/D)
  15. GARLIC [Concomitant]
  16. FLUOXETINE [Concomitant]
     Dosage: 20 MG, 2/D
  17. TRAZODONE HCL [Concomitant]
     Dosage: 50 MG, EACH EVENING
  18. CALCIUM ACETATE [Concomitant]
     Dosage: 2001 MG, 3/D
  19. FLURBIPROFEN [Concomitant]
     Dosage: 100 MG, 2/D
  20. METFORMIN [Concomitant]
     Dosage: 1000 MG, 2/D
  21. CARTIA /USA/ [Concomitant]
  22. DIOVAN [Concomitant]

REACTIONS (7)
  - DRUG INEFFECTIVE [None]
  - HYPERGLYCAEMIA [None]
  - OFF LABEL USE [None]
  - RENAL FAILURE ACUTE [None]
  - RHABDOMYOLYSIS [None]
  - SEPTIC SHOCK [None]
  - WEIGHT DECREASED [None]
